FAERS Safety Report 18822696 (Version 2)
Quarter: 2021Q1

REPORT INFORMATION
  Report Type: Other
  Country: KR (occurrence: KR)
  Receive Date: 20210202
  Receipt Date: 20210305
  Transmission Date: 20210419
  Serious: Yes (Other)
  Sender: FDA-Public Use
  Company Number: KR-ROCHE-2759042

PATIENT
  Age: 61 Year
  Sex: Male

DRUGS (1)
  1. BEVACIZUMAB. [Suspect]
     Active Substance: BEVACIZUMAB
     Indication: RETINAL VEIN OCCLUSION
     Route: 050

REACTIONS (6)
  - Nausea [Unknown]
  - Headache [Unknown]
  - Off label use [Unknown]
  - Eye pain [Unknown]
  - Intentional product use issue [Unknown]
  - Angle closure glaucoma [Unknown]
